FAERS Safety Report 10446811 (Version 2)
Quarter: 2014Q4

REPORT INFORMATION
  Report Type: Spontaneous
  Country: US (occurrence: None)
  Receive Date: 20140909
  Receipt Date: 20141003
  Transmission Date: 20150528
  Serious: Yes (Hospitalization)
  Sender: FDA-Public Use
  Company Number: 2014SMT00060

PATIENT
  Age: 64 Year
  Sex: Male
  Weight: 88.9 kg

DRUGS (1)
  1. REGRANEX [Suspect]
     Active Substance: BECAPLERMIN
     Dosage: UNK, UNK, 1X/DAY, TOPICAL
     Route: 061
     Dates: start: 20140815, end: 201408

REACTIONS (6)
  - Wound complication [None]
  - Drug ineffective [None]
  - Toe amputation [None]
  - Erythema [None]
  - Investigation [None]
  - Wound haemorrhage [None]

NARRATIVE: CASE EVENT DATE: 201408
